FAERS Safety Report 25225318 (Version 1)
Quarter: 2025Q2

REPORT INFORMATION
  Report Type: Spontaneous
  Country: NL (occurrence: NL)
  Receive Date: 20250422
  Receipt Date: 20250422
  Transmission Date: 20250716
  Serious: Yes (Hospitalization, Other)
  Sender: AUROBINDO
  Company Number: NL-LRB-00582050

PATIENT
  Age: 23 Year
  Sex: Female
  Weight: 95 kg

DRUGS (1)
  1. PREDNISOLONE [Suspect]
     Active Substance: PREDNISOLONE
     Indication: Immune thrombocytopenia
     Dosage: 1 DOSAGE FORM, TWO TIMES A DAY, IK DACHT 1 OF 2 X DAAGS, HEB HET TOEN RUIM EEN JAAR GESLIKT
     Route: 065
     Dates: start: 199705

REACTIONS (2)
  - Epilepsy [Recovered/Resolved]
  - Urge incontinence [Recovered/Resolved]

NARRATIVE: CASE EVENT DATE: 19970701
